FAERS Safety Report 24382772 (Version 1)
Quarter: 2024Q3

REPORT INFORMATION
  Report Type: Spontaneous
  Country: US (occurrence: None)
  Receive Date: 20240930
  Receipt Date: 20240930
  Transmission Date: 20241016
  Serious: No
  Sender: Public
  Company Number: None

PATIENT
  Age: 33 Year
  Sex: Male

DRUGS (1)
  1. CABENUVA [Suspect]
     Active Substance: CABOTEGRAVIR\RILPIVIRINE
     Indication: HIV infection
     Dosage: 3 ML TO EACH CHEEK EVERY 8 WEEKS INTRAMUSCULAR?
     Route: 030
     Dates: start: 20230426

REACTIONS (2)
  - Abnormal dreams [None]
  - Influenza like illness [None]

NARRATIVE: CASE EVENT DATE: 20240807
